FAERS Safety Report 9326039 (Version 1)
Quarter: 2013Q2

REPORT INFORMATION
  Report Type: Spontaneous
  Country: US (occurrence: None)
  Receive Date: 20130603
  Receipt Date: 20130603
  Transmission Date: 20140414
  Serious: Yes (Other)
  Sender: FDA-Public Use
  Company Number: None

PATIENT
  Age: 26 Year
  Sex: Male
  Weight: 124.74 kg

DRUGS (1)
  1. WARFARIN [Suspect]
     Indication: HOMOCYSTINURIA
     Route: 048
     Dates: start: 20090417, end: 20130531

REACTIONS (2)
  - International normalised ratio increased [None]
  - Product quality issue [None]
